FAERS Safety Report 9703378 (Version 2)
Quarter: 2013Q4

REPORT INFORMATION
  Report Type: Spontaneous
  Country: US (occurrence: US)
  Receive Date: 20131122
  Receipt Date: 20131122
  Transmission Date: 20140711
  Serious: Yes (Hospitalization)
  Sender: FDA-Public Use
  Company Number: PHEH2013US024099

PATIENT
  Age: 61 Year
  Sex: Male
  Weight: 93.88 kg

DRUGS (7)
  1. GILENYA [Suspect]
     Indication: MULTIPLE SCLEROSIS
     Dosage: 0.5 MG, QD
     Route: 048
     Dates: start: 201202, end: 20131014
  2. CLONAZEPAM [Concomitant]
     Dosage: 1 MG, QD
  3. PREDNISONE [Concomitant]
     Dosage: 10 MG, QD
  4. LOPERAMIDE [Concomitant]
     Dosage: 4 MG, TID
  5. CARVEDILOL [Concomitant]
     Dosage: 0.125 MG, QD
  6. TRAMADOL [Concomitant]
     Dosage: 50 MG, QD
  7. ROPINIROLE [Concomitant]

REACTIONS (1)
  - Mycobacterial infection [Not Recovered/Not Resolved]
